FAERS Safety Report 15643100 (Version 3)
Quarter: 2019Q1

REPORT INFORMATION
  Report Type: Report from Study
  Country: IT (occurrence: IT)
  Receive Date: 20181121
  Receipt Date: 20190108
  Transmission Date: 20190417
  Serious: Yes (Death, Life-Threatening, Hospitalization, Other)
  Sender: FDA-Public Use
  Company Number: IT-CELLTRION INC.-2018IT023925

PATIENT

DRUGS (2)
  1. REMSIMA [Suspect]
     Active Substance: INFLIXIMAB
     Indication: CROHN^S DISEASE
     Dosage: 7 MG/KG, EVERY 6 WEEKS
     Route: 042
     Dates: start: 201510, end: 201510
  2. REMSIMA [Suspect]
     Active Substance: INFLIXIMAB
     Dosage: 7 MG/KG, EVERY 6 WEEKS
     Route: 065
     Dates: start: 20180221, end: 20180221

REACTIONS (2)
  - Lung adenocarcinoma [Fatal]
  - Inappropriate schedule of product administration [Unknown]

NARRATIVE: CASE EVENT DATE: 20180525
